FAERS Safety Report 19318858 (Version 1)
Quarter: 2021Q2

REPORT INFORMATION
  Report Type: Other
  Country: NO (occurrence: NO)
  Receive Date: 20210527
  Receipt Date: 20210527
  Transmission Date: 20210717
  Serious: Yes (Hospitalization, Disabling)
  Sender: FDA-Public Use
  Company Number: NO-INCYTE CORPORATION-2021IN004621

PATIENT

DRUGS (1)
  1. JAKAVI [Suspect]
     Active Substance: RUXOLITINIB
     Indication: PRIMARY MYELOFIBROSIS
     Dosage: 15 MG, Q12H
     Route: 048
     Dates: start: 2016, end: 20191230

REACTIONS (4)
  - Cerebral ischaemia [Recovering/Resolving]
  - Herpes zoster necrotising retinopathy [Recovering/Resolving]
  - Herpes zoster meningoencephalitis [Recovering/Resolving]
  - Herpes zoster reactivation [Recovering/Resolving]

NARRATIVE: CASE EVENT DATE: 201911
